FAERS Safety Report 13541353 (Version 1)
Quarter: 2017Q2

REPORT INFORMATION
  Report Type: Spontaneous
  Country: US (occurrence: US)
  Receive Date: 20170512
  Receipt Date: 20170512
  Transmission Date: 20170830
  Serious: No
  Sender: FDA-Public Use
  Company Number: US-SA-2016SA105562

PATIENT
  Age: 30 Year
  Sex: Female

DRUGS (2)
  1. SOLOSTAR [Suspect]
     Active Substance: DEVICE
     Indication: TYPE 1 DIABETES MELLITUS
     Dates: start: 201510
  2. APIDRA SOLOSTAR [Suspect]
     Active Substance: INSULIN GLULISINE
     Indication: TYPE 1 DIABETES MELLITUS
     Dosage: DOSE: 20-25 UNITS TID
     Route: 065
     Dates: start: 201510

REACTIONS (5)
  - Malaise [Unknown]
  - Blood glucose decreased [Unknown]
  - Device issue [Unknown]
  - Injection site pain [Unknown]
  - Off label use [Unknown]
